FAERS Safety Report 14290933 (Version 7)
Quarter: 2018Q2

REPORT INFORMATION
  Report Type: Report from Study
  Country: CR (occurrence: CR)
  Receive Date: 20171215
  Receipt Date: 20180525
  Transmission Date: 20180711
  Serious: Yes (Other)
  Sender: FDA-Public Use
  Company Number: PHHY2017CR182312

PATIENT
  Sex: Male
  Weight: 103 kg

DRUGS (3)
  1. GLIVEC [Suspect]
     Active Substance: IMATINIB MESYLATE
     Indication: PRODUCT USED FOR UNKNOWN INDICATION
     Dosage: UNK
     Route: 065
  2. TASIGNA [Suspect]
     Active Substance: NILOTINIB
     Indication: CHRONIC MYELOID LEUKAEMIA
     Dosage: 400 MG, QD  (1 IN THE MORNING AND 1 AT NIGHT)
     Route: 048
  3. TASIGNA [Suspect]
     Active Substance: NILOTINIB
     Dosage: 400 MG, BID  (1 IN THE MORNING AND 1 AT NIGHT)
     Route: 048

REACTIONS (10)
  - Abdominal pain upper [Unknown]
  - Bone disorder [Unknown]
  - Nausea [Unknown]
  - Fatigue [Unknown]
  - Erythema [Unknown]
  - Neoplasm [Not Recovered/Not Resolved]
  - Oropharyngeal blistering [Not Recovered/Not Resolved]
  - Decreased appetite [Unknown]
  - Hypersensitivity [Unknown]
  - Blood cholesterol increased [Unknown]
